FAERS Safety Report 6166592-X (Version None)
Quarter: 2009Q2

REPORT INFORMATION
  Report Type: 
  Country: None (occurrence: None)
  Receive Date: 20090424
  Receipt Date: 20080515
  Transmission Date: 20091009
  Serious: No
  Sender: FDA-Public Use
  Company Number: US-ASTRAZENECA-2008UW03737

PATIENT
  Age: 50 Year
  Sex: Female

DRUGS (2)
  1. ZOMIG-ZMT [Suspect]
     Indication: MIGRAINE
     Route: 048
  2. ZOMIG-ZMT [Suspect]
     Route: 048

REACTIONS (2)
  - DRUG INEFFECTIVE [None]
  - PRODUCT QUALITY ISSUE [None]
